FAERS Safety Report 15974050 (Version 1)
Quarter: 2019Q1

REPORT INFORMATION
  Report Type: Spontaneous
  Country: ES (occurrence: ES)
  Receive Date: 20190217
  Receipt Date: 20190217
  Transmission Date: 20190418
  Serious: Yes (Other)
  Sender: FDA-Public Use
  Company Number: ES-ABBVIE-19K-144-2664731-00

PATIENT
  Age: 55 Year
  Sex: Female

DRUGS (3)
  1. HUMIRA [Suspect]
     Active Substance: ADALIMUMAB
     Indication: RHEUMATOID ARTHRITIS
     Route: 058
     Dates: start: 201310, end: 201403
  2. ORENCIA [Suspect]
     Active Substance: ABATACEPT
     Indication: RHEUMATOID ARTHRITIS
     Dosage: FIRST DOSE: IV
     Route: 042
     Dates: start: 201510
  3. ORENCIA [Suspect]
     Active Substance: ABATACEPT
     Dosage: 2 FOLLOWING DOSES
     Route: 058
     Dates: start: 201510

REACTIONS (3)
  - Bipolar II disorder [Not Recovered/Not Resolved]
  - Suicidal ideation [Recovered/Resolved]
  - Asthenia [Recovered/Resolved]

NARRATIVE: CASE EVENT DATE: 201311
